FAERS Safety Report 11326606 (Version 1)
Quarter: 2015Q3

REPORT INFORMATION
  Report Type: Report from Study
  Country: US (occurrence: US)
  Receive Date: 20150731
  Receipt Date: 20150731
  Transmission Date: 20151125
  Serious: Yes (Other)
  Sender: FDA-Public Use
  Company Number: US-BIOGENIDEC-2015BI103613

PATIENT
  Age: 43 Year
  Sex: Female

DRUGS (3)
  1. TECFIDERA [Suspect]
     Active Substance: DIMETHYL FUMARATE
     Indication: MULTIPLE SCLEROSIS
     Route: 048
  2. HCTZ [Concomitant]
     Active Substance: HYDROCHLOROTHIAZIDE
  3. ATENOLOL. [Concomitant]
     Active Substance: ATENOLOL

REACTIONS (2)
  - Cholecystectomy [Unknown]
  - Adverse event [Unknown]

NARRATIVE: CASE EVENT DATE: 201408
